FAERS Safety Report 24085339 (Version 1)
Quarter: 2024Q3

REPORT INFORMATION
  Report Type: Report from Study
  Country: BR (occurrence: BR)
  Receive Date: 20240712
  Receipt Date: 20240712
  Transmission Date: 20241016
  Serious: Yes (Other)
  Sender: ELI LILLY AND CO
  Company Number: BR-Merck Healthcare KGaA-2024036625

PATIENT
  Age: 49 Year
  Sex: Male

DRUGS (1)
  1. CETUXIMAB [Suspect]
     Active Substance: CETUXIMAB
     Indication: Colon cancer metastatic
     Dosage: UNK, 2/M
     Route: 042
     Dates: start: 20230816

REACTIONS (4)
  - Diabetes mellitus [Unknown]
  - Pulmonary embolism [Unknown]
  - Malignant neoplasm progression [Recovered/Resolved]
  - Off label use [Unknown]
